FAERS Safety Report 7761858-1 (Version None)
Quarter: 2011Q3

REPORT INFORMATION
  Report Type: 
  Country: None (occurrence: None)
  Receive Date: 20110920
  Receipt Date: 20110916
  Transmission Date: 20111222
  Serious: Yes (Hospitalization)
  Sender: FDA-Public Use
  Company Number: FR-SANOFI-AVENTIS-2011SA060456

PATIENT
  Age: 74 Year
  Sex: Male

DRUGS (5)
  1. RIFATER [Suspect]
     Indication: TUBERCULOSIS
     Dosage: DOSE:5 UNIT(S)
     Route: 048
     Dates: start: 20101020, end: 20101127
  2. MYAMBUTOL [Concomitant]
     Indication: TUBERCULOSIS
     Route: 048
     Dates: start: 20101020, end: 20101127
  3. ESOMEPRAZOLE SODIUM [Concomitant]
     Route: 048
  4. ASPIRIN [Concomitant]
     Route: 048
  5. ALLOPURINOL [Concomitant]
     Route: 065

REACTIONS (8)
  - TOXIC SKIN ERUPTION [None]
  - HYPERTHERMIA [None]
  - DRUG RASH WITH EOSINOPHILIA AND SYSTEMIC SYMPTOMS [None]
  - RENAL FAILURE [None]
  - CYTOLYTIC HEPATITIS [None]
  - CHOLESTASIS [None]
  - MIXED LIVER INJURY [None]
  - DERMATITIS EXFOLIATIVE [None]
